FAERS Safety Report 5553886-1 (Version None)
Quarter: 2007Q4

REPORT INFORMATION
  Report Type: 
  Country: None (occurrence: None)
  Receive Date: 20071211
  Receipt Date: 20071130
  Transmission Date: 20080405
  Serious: Yes (Hospitalization)
  Sender: FDA-Public Use
  Company Number: 230858J07USA

PATIENT
  Age: 48 Year
  Sex: Female

DRUGS (9)
  1. REBIF [Suspect]
     Indication: MULTIPLE SCLEROSIS
     Dosage: 44 MCG, 3 IN 1 WEEKS, SUBCUTANEOUS
     Route: 058
     Dates: start: 20030623
  2. FUROSEMIDE (FUROSEMIDE/00032601/) [Concomitant]
  3. VALIUM [Concomitant]
  4. PERCOCET [Concomitant]
  5. EFFEXOR [Concomitant]
  6. NEURONTIN [Concomitant]
  7. REQUIP [Concomitant]
  8. CYCLOBENZAPRINE [Concomitant]
  9. METFORMIN (METFORMIN/00082701) [Concomitant]

REACTIONS (3)
  - EYE DISORDER [None]
  - URINARY TRACT INFECTION [None]
  - WEIGHT DECREASED [None]
